FAERS Safety Report 5222767-5 (Version None)
Quarter: 2007Q1

REPORT INFORMATION
  Report Type: 
  Country: None (occurrence: None)
  Receive Date: 20061208
  Receipt Date: 20060128
  Transmission Date: 20070707
  Serious: Yes (Other)
  Sender: FDA-Public Use
  Company Number: 2006014804

PATIENT
  Age: 30 Year
  Sex: Male
  Weight: 102.0593 kg

DRUGS (4)
  1. VIAGRA [Suspect]
     Indication: ILL-DEFINED DISORDER
     Dosage: 50 MG (50 MG, 1 IN 1 D), ORAL
     Route: 048
     Dates: start: 20050101
  2. MULTIVITAMIN [Concomitant]
  3. PROTEIN SUPPLEMENTS (PROTEIN SUPPLEMENTS) [Concomitant]
  4. METHYLENEDIOXYMETHAMPHETAMINE (METHYLENEDIOXYMETHAMPHETAMINE) [Concomitant]

REACTIONS (2)
  - ERECTION INCREASED [None]
  - PAINFUL ERECTION [None]
